FAERS Safety Report 11785110 (Version 1)
Quarter: 2015Q4

REPORT INFORMATION
  Report Type: Spontaneous
  Country: US (occurrence: None)
  Receive Date: 20151125
  Receipt Date: 20151125
  Transmission Date: 20160305
  Serious: Yes (Other)
  Sender: FDA-Public Use
  Company Number: None

PATIENT
  Age: 48 Year
  Sex: Female
  Weight: 99.34 kg

DRUGS (4)
  1. TRIAM/HCTZ [Concomitant]
  2. BENAZEPRIL [Suspect]
     Active Substance: BENAZEPRIL HYDROCHLORIDE
     Indication: CARDIAC DISORDER
     Dosage: 2 PILLS?ONCE DAILY??THERAPY ?FEW YEARS
  3. TYLENOL [Concomitant]
     Active Substance: ACETAMINOPHEN
  4. BYSTOLIC [Concomitant]
     Active Substance: NEBIVOLOL HYDROCHLORIDE

REACTIONS (2)
  - Renal failure [None]
  - Therapy cessation [None]

NARRATIVE: CASE EVENT DATE: 20150315
